FAERS Safety Report 5390013-8 (Version None)
Quarter: 2007Q3

REPORT INFORMATION
  Report Type: 
  Country: None (occurrence: None)
  Receive Date: 20070713
  Receipt Date: 20070629
  Transmission Date: 20080115
  Serious: Yes (Death, Other)
  Sender: FDA-Public Use
  Company Number: 2007US001571

PATIENT
  Age: 5 Year
  Sex: Female

DRUGS (2)
  1. AMBISOME [Suspect]
     Indication: CUTANEOUS LEISHMANIASIS
     Dosage: IV NOS
     Route: 042
  2. ANTIMONY         (ANTIMONY) [Suspect]
     Indication: CUTANEOUS LEISHMANIASIS

REACTIONS (12)
  - BRONCHOPNEUMONIA [None]
  - DRUG INEFFECTIVE [None]
  - GENERAL PHYSICAL HEALTH DETERIORATION [None]
  - INFECTION [None]
  - MALNUTRITION [None]
  - NASAL SEPTUM PERFORATION [None]
  - NEPHROPATHY TOXIC [None]
  - PSEUDOMONAS INFECTION [None]
  - RHINITIS ALLERGIC [None]
  - SEPSIS [None]
  - STAPHYLOCOCCAL INFECTION [None]
  - ULCER [None]
